FAERS Safety Report 7227873-1 (Version None)
Quarter: 2010Q4

REPORT INFORMATION
  Report Type: 
  Country: None (occurrence: None)
  Receive Date: 20101126
  Receipt Date: 20100820
  Transmission Date: 20110411
  Serious: No
  Sender: FDA-Public Use
  Company Number: 313563

PATIENT
  Age: 53 Year
  Sex: Male

DRUGS (2)
  1. VICTOZA [Suspect]
     Indication: METABOLIC SYNDROME
     Dosage: 1.2 MG, QD, SUBCUTANEOUS, 0.6 MG,QD, SUBCUTANEOUS
     Route: 058
  2. METFORMIN HCL [Concomitant]

REACTIONS (3)
  - DECREASED APPETITE [None]
  - NAUSEA [None]
  - WEIGHT DECREASED [None]
